FAERS Safety Report 9298969 (Version 1)
Quarter: 2013Q2

REPORT INFORMATION
  Report Type: Spontaneous
  Country: US (occurrence: US)
  Receive Date: 20130520
  Receipt Date: 20130520
  Transmission Date: 20140414
  Serious: No
  Sender: FDA-Public Use
  Company Number: US-SANOFI-AVENTIS-2013SA006759

PATIENT
  Age: 80 Year
  Sex: Female

DRUGS (1)
  1. APIDRA [Suspect]
     Dosage: 3 UNITS - 6 UNITS, PRIOR TO MEALS DOSE:9 UNIT(S)
     Route: 058

REACTIONS (1)
  - Visual impairment [Unknown]
